FAERS Safety Report 8678662 (Version 8)
Quarter: 2013Q3

REPORT INFORMATION
  Report Type: Spontaneous
  Country: US (occurrence: US)
  Receive Date: 20120723
  Receipt Date: 20130906
  Transmission Date: 20140515
  Serious: Yes (Other)
  Sender: FDA-Public Use
  Company Number: US-009507513-1111USA02498

PATIENT
  Sex: Female
  Weight: 43.99 kg

DRUGS (6)
  1. FOSAMAX [Suspect]
     Indication: OSTEOPOROSIS
     Dosage: 70 MG, UNK
     Route: 048
     Dates: start: 20030102, end: 20051012
  2. BONIVA [Suspect]
     Indication: OSTEOPOROSIS
     Dosage: UNK
     Route: 048
     Dates: start: 20051013, end: 200903
  3. DIURETIC (UNSPECIFIED) [Concomitant]
     Dates: start: 1998
  4. PRINIVIL [Concomitant]
     Indication: HYPERTENSION
     Dates: start: 1998
  5. MK-9359 [Concomitant]
     Indication: HYPERTENSION
     Dates: start: 1998
  6. SIMVASTATIN [Concomitant]
     Indication: BLOOD CHOLESTEROL INCREASED
     Dates: start: 1998

REACTIONS (60)
  - Renal failure chronic [Unknown]
  - Bone debridement [Unknown]
  - Osteonecrosis of jaw [Not Recovered/Not Resolved]
  - Dental caries [Not Recovered/Not Resolved]
  - Oral infection [Not Recovered/Not Resolved]
  - Stomatitis [Unknown]
  - Exostosis [Unknown]
  - Oral infection [Unknown]
  - Gingival bleeding [Unknown]
  - Temporomandibular joint syndrome [Unknown]
  - Oral pain [Unknown]
  - Abscess [Unknown]
  - Edentulous [Not Recovered/Not Resolved]
  - Tooth fracture [Unknown]
  - Gingival pain [Unknown]
  - Peripheral vascular disorder [Unknown]
  - Insomnia [Unknown]
  - Chronic obstructive pulmonary disease [Unknown]
  - Spinal osteoarthritis [Unknown]
  - Chronic sinusitis [Not Recovered/Not Resolved]
  - Eustachian tube dysfunction [Not Recovered/Not Resolved]
  - Rhinitis allergic [Not Recovered/Not Resolved]
  - Sinus antrostomy [Unknown]
  - Bronchitis [Unknown]
  - Sinusitis [Recovering/Resolving]
  - Atrophic vulvovaginitis [Not Recovered/Not Resolved]
  - Urethritis [Not Recovered/Not Resolved]
  - Osteomyelitis chronic [Not Recovered/Not Resolved]
  - Eustachian tube dysfunction [Unknown]
  - Cerumen impaction [Recovered/Resolved]
  - Chronic obstructive pulmonary disease [Unknown]
  - Bronchitis [Unknown]
  - Sinusitis [Unknown]
  - Occult blood positive [Unknown]
  - Organising pneumonia [Recovered/Resolved]
  - Tooth extraction [Not Recovered/Not Resolved]
  - Impaired healing [Unknown]
  - Otitis media [Unknown]
  - Anaemia of chronic disease [Unknown]
  - Toothache [Unknown]
  - Rotator cuff syndrome [Unknown]
  - Swelling [Unknown]
  - Rotator cuff syndrome [Unknown]
  - Gastroenteritis viral [Unknown]
  - Radiculitis cervical [Unknown]
  - Endodontic procedure [Not Recovered/Not Resolved]
  - Tooth extraction [Unknown]
  - Tooth extraction [Unknown]
  - Asthma [Unknown]
  - Cardiac failure congestive [Unknown]
  - Bronchitis [Unknown]
  - Oral candidiasis [Unknown]
  - Dental caries [Unknown]
  - Tooth abscess [Unknown]
  - Eczema [Unknown]
  - Oedema mouth [Unknown]
  - Gastrooesophageal reflux disease [Unknown]
  - Abdominal discomfort [Unknown]
  - Headache [Unknown]
  - Pain in jaw [Unknown]
